FAERS Safety Report 13139016 (Version 2)
Quarter: 2017Q1

REPORT INFORMATION
  Report Type: Spontaneous
  Country: US (occurrence: US)
  Receive Date: 20170123
  Receipt Date: 20170123
  Transmission Date: 20170428
  Serious: No
  Sender: FDA-Public Use
  Company Number: US-UNITED THERAPEUTICS-UNT-2016-013700

PATIENT
  Age: 66 Year
  Sex: Female
  Weight: 95.24 kg

DRUGS (5)
  1. REMODULIN [Suspect]
     Active Substance: TREPROSTINIL
     Indication: PULMONARY ARTERIAL HYPERTENSION
     Dosage: 0.031 ?G/KG, CONTINUING
     Route: 058
     Dates: start: 20130712
  2. ADEMPAS [Concomitant]
     Active Substance: RIOCIGUAT
     Indication: PRODUCT USED FOR UNKNOWN INDICATION
  3. LETAIRIS [Suspect]
     Active Substance: AMBRISENTAN
     Indication: PRODUCT USED FOR UNKNOWN INDICATION
     Dosage: 10 MG, QD
     Route: 048
     Dates: start: 20131029
  4. REMODULIN [Suspect]
     Active Substance: TREPROSTINIL
     Dosage: 0.035 ?G/KG, CONTINUING
     Route: 058
  5. ADCIRCA [Concomitant]
     Active Substance: TADALAFIL
     Indication: PRODUCT USED FOR UNKNOWN INDICATION

REACTIONS (7)
  - Oxygen saturation decreased [Unknown]
  - Dyspnoea [Recovering/Resolving]
  - Headache [Unknown]
  - Fatigue [Recovering/Resolving]
  - Chronic sinusitis [Not Recovered/Not Resolved]
  - Vomiting [Unknown]
  - Diarrhoea [Unknown]

NARRATIVE: CASE EVENT DATE: 201607
